FAERS Safety Report 9121989 (Version 1)
Quarter: 2013Q1

REPORT INFORMATION
  Report Type: Spontaneous
  Country: CL (occurrence: CL)
  Receive Date: 20130114
  Receipt Date: 20130114
  Transmission Date: 20140127
  Serious: Yes (Hospitalization)
  Sender: FDA-Public Use
  Company Number: CL-PFIZER INC-2012300124

PATIENT
  Age: 7 Year
  Sex: Male

DRUGS (5)
  1. VFEND [Suspect]
     Indication: ASPERGILLUS INFECTION
     Dosage: 300 MG, 2X/DAY
     Route: 048
     Dates: start: 20120720, end: 201212
  2. PREDNISONE [Concomitant]
  3. OMEPRAZOLE [Concomitant]
  4. LEVETIRACETAM [Concomitant]
  5. PURINETHOL [Concomitant]

REACTIONS (1)
  - Hemiplegia [Recovering/Resolving]
